FAERS Safety Report 26103337 (Version 1)
Quarter: 2025Q4

REPORT INFORMATION
  Report Type: Report from Study
  Country: US (occurrence: None)
  Receive Date: 20251129
  Receipt Date: 20251129
  Transmission Date: 20260117
  Serious: Yes (Hospitalization)
  Sender: UCB
  Company Number: US-UCBSA-2025059822

PATIENT
  Age: 39 Year
  Weight: 97.5 kg

DRUGS (2)
  1. BIMEKIZUMAB [Suspect]
     Active Substance: BIMEKIZUMAB
     Indication: Hidradenitis
     Dosage: 320 MILLIGRAM, EV 2 WEEKS(QOW)
  2. BIMEKIZUMAB [Suspect]
     Active Substance: BIMEKIZUMAB
     Dosage: 320 MILLIGRAM, EV 4 WEEKS

REACTIONS (10)
  - Testicular cyst [Not Recovered/Not Resolved]
  - Fatigue [Not Recovered/Not Resolved]
  - Depressed mood [Not Recovered/Not Resolved]
  - Drainage [Recovering/Resolving]
  - Furuncle [Recovering/Resolving]
  - Pain [Not Recovered/Not Resolved]
  - Acne [Not Recovered/Not Resolved]
  - Hidradenitis [Not Recovered/Not Resolved]
  - Condition aggravated [Not Recovered/Not Resolved]
  - Therapeutic response shortened [Unknown]
